FAERS Safety Report 6336887-5 (Version None)
Quarter: 2009Q3

REPORT INFORMATION
  Report Type: 
  Country: None (occurrence: None)
  Receive Date: 20090901
  Receipt Date: 20090821
  Transmission Date: 20100115
  Serious: Yes (Disabling, Other)
  Sender: FDA-Public Use
  Company Number: PHHY2007JP00680

PATIENT
  Sex: Female

DRUGS (11)
  1. GLEEVEC [Suspect]
     Indication: CHRONIC MYELOID LEUKAEMIA
     Dosage: 200MG / DAY
     Route: 048
     Dates: start: 20031014, end: 20031224
  2. GLEEVEC [Suspect]
     Dosage: 100MG/ DAY
     Route: 048
     Dates: start: 20031225, end: 20040425
  3. GLEEVEC [Suspect]
     Dosage: 200 MG/ DAY
     Route: 048
     Dates: start: 20040425, end: 20040510
  4. GLEEVEC [Suspect]
     Dosage: 200MG/ DAY
     Route: 048
     Dates: start: 20040511, end: 20070515
  5. GLEEVEC [Suspect]
     Dosage: 300MG/ DAY
     Route: 048
     Dates: start: 20070516, end: 20070524
  6. GLEEVEC [Suspect]
     Dosage: 300MG /DAY
     Route: 048
     Dates: start: 20070525
  7. LASIX [Concomitant]
     Dosage: 20 MG, QD
  8. LASIX [Concomitant]
     Dosage: 40 MG, QD
     Dates: start: 20071024
  9. DIOVAN [Concomitant]
     Indication: BLOOD PRESSURE INCREASED
     Dosage: 40 MG, QD
     Dates: start: 20070912
  10. DORNER [Concomitant]
     Indication: PULMONARY HYPERTENSION
     Dosage: 60 UG, QD
     Dates: start: 20070926
  11. DORNER [Concomitant]
     Dosage: 120 UG, QD
     Dates: start: 20071107

REACTIONS (15)
  - BRAIN NATRIURETIC PEPTIDE INCREASED [None]
  - CARDIAC HYPERTROPHY [None]
  - CARDIOTHORACIC RATIO INCREASED [None]
  - DILATATION VENTRICULAR [None]
  - FALL [None]
  - FLUID RETENTION [None]
  - HAEMATOCRIT DECREASED [None]
  - HAEMOGLOBIN DECREASED [None]
  - HYPOVENTILATION [None]
  - OEDEMA [None]
  - PERICARDIAL EFFUSION [None]
  - PLEURAL EFFUSION [None]
  - PULMONARY HYPERTENSION [None]
  - RED BLOOD CELL COUNT DECREASED [None]
  - RIGHT VENTRICULAR FAILURE [None]
